FAERS Safety Report 16136733 (Version 2)
Quarter: 2019Q2

REPORT INFORMATION
  Report Type: Spontaneous
  Country: US (occurrence: US)
  Receive Date: 20190401
  Receipt Date: 20190503
  Transmission Date: 20190711
  Serious: No
  Sender: FDA-Public Use
  Company Number: US-GLAXOSMITHKLINE-US2019054733

PATIENT
  Sex: Female

DRUGS (2)
  1. ALBUTEROL. [Suspect]
     Active Substance: ALBUTEROL
     Indication: PRODUCT USED FOR UNKNOWN INDICATION
     Dosage: UNK
     Route: 065
  2. VENTOLIN HFA [Suspect]
     Active Substance: ALBUTEROL SULFATE
     Indication: PNEUMONIA
     Dosage: 1 PUFF EVERY 4 HOURS OR 2 PUFFS EVERY 6 HOURS AS NEEDED,PRN
     Route: 055

REACTIONS (5)
  - Tachycardia [Unknown]
  - Product complaint [Unknown]
  - Product use in unapproved indication [Unknown]
  - Product dose omission [Unknown]
  - Underdose [Unknown]
